FAERS Safety Report 5070304-0 (Version None)
Quarter: 2006Q3

REPORT INFORMATION
  Report Type: 
  Country: None (occurrence: None)
  Receive Date: 20060731
  Receipt Date: 20060713
  Transmission Date: 20061208
  Serious: Yes (Hospitalization)
  Sender: FDA-Public Use
  Company Number: E2B00008386F

PATIENT
  Age: 66 Year
  Sex: Female

DRUGS (4)
  1. NIASPAN [Suspect]
     Indication: HYPERCHOLESTEROLAEMIA
     Dosage: 1000 MG QD PO
     Route: 048
     Dates: start: 20060621, end: 20060621
  2. CLOPIDOGREL BISULFATE [Concomitant]
  3. CANDESARTAN CILEXETIL [Concomitant]
  4. FLUVASTATIN [Concomitant]

REACTIONS (3)
  - MALAISE [None]
  - PRURITUS [None]
  - URTICARIA GENERALISED [None]
